FAERS Safety Report 17445041 (Version 1)
Quarter: 2020Q1

REPORT INFORMATION
  Report Type: Spontaneous
  Country: CN (occurrence: CN)
  Receive Date: 20200221
  Receipt Date: 20200221
  Transmission Date: 20200409
  Serious: Yes (Other)
  Sender: FDA-Public Use
  Company Number: CN-BAXTER-2020BAX003726

PATIENT
  Age: 62 Year
  Sex: Female
  Weight: 70 kg

DRUGS (13)
  1. ENDOXAN [Suspect]
     Active Substance: CYCLOPHOSPHAMIDE
     Dosage: 5TH CHEMOTHERAPY, ENDOXAN POWDER FOR INJECTION + NS 45 ML
     Route: 041
     Dates: start: 20191125, end: 20191125
  2. 0.9% SODIUM CHLORIDE INJECTION [Suspect]
     Active Substance: SODIUM CHLORIDE
     Dosage: DOSE RE-INTRODUCED, AIDASHENG POWDER FOR INJECTION + NS
     Route: 041
  3. AIDASHENG [Suspect]
     Active Substance: EPIRUBICIN HYDROCHLORIDE
     Indication: BREAST CANCER FEMALE
     Dosage: 1ST TO 4TH CHEMOTHERAPY, AIDASHENG POWDER FOR INJECTION + NS
     Route: 041
  4. ENDOXAN [Suspect]
     Active Substance: CYCLOPHOSPHAMIDE
     Indication: BREAST CANCER FEMALE
     Dosage: 1ST TO 4TH CHEMOTHERAPY, ENDOXAN POWDER FOR INJECTION + NS
     Route: 041
  5. 0.9% SODIUM CHLORIDE INJECTION [Suspect]
     Active Substance: SODIUM CHLORIDE
     Dosage: DOSE RE-INTRODUCED, ENDOXAN POWDER FOR INJECTION + NS
     Route: 041
  6. AIDASHENG [Suspect]
     Active Substance: EPIRUBICIN HYDROCHLORIDE
     Dosage: DOSE RE-INTRODUCED, AIDASHENG POWDER FOR INJECTION + NS
     Route: 041
  7. 0.9% SODIUM CHLORIDE INJECTION [Suspect]
     Active Substance: SODIUM CHLORIDE
     Dosage: 5TH CHEMOTHERAPY, AIDASHENG POWDER FOR INJECTION 145 MG + NS
     Route: 041
     Dates: start: 20191125, end: 20191125
  8. 0.9% SODIUM CHLORIDE INJECTION [Suspect]
     Active Substance: SODIUM CHLORIDE
     Dosage: 5TH CHEMOTHERAPY, ENDOXAN POWDER FOR INJECTION 900 MG + NS
     Route: 041
     Dates: start: 20191125, end: 20191125
  9. ENDOXAN [Suspect]
     Active Substance: CYCLOPHOSPHAMIDE
     Dosage: DOSE RE-INTRODUCED, ENDOXAN POWDER FOR INJECTION + NS
     Route: 041
  10. 0.9% SODIUM CHLORIDE INJECTION [Suspect]
     Active Substance: SODIUM CHLORIDE
     Indication: MEDICATION DILUTION
     Dosage: 1ST TO 4TH CHEMOTHERAPY, ENDOXAN POWDER FOR INJECTION + NS
     Route: 041
  11. AIDASHENG [Suspect]
     Active Substance: EPIRUBICIN HYDROCHLORIDE
     Dosage: 5TH CHEMOTHERAPY, AIDASHENG POWDER FOR INJECTION + NS 100 ML
     Route: 041
     Dates: start: 20191125, end: 20191125
  12. JIN YOU LI XIN RUI BAI [Concomitant]
     Indication: PRODUCT USED FOR UNKNOWN INDICATION
     Route: 058
     Dates: start: 20191126
  13. 0.9% SODIUM CHLORIDE INJECTION [Suspect]
     Active Substance: SODIUM CHLORIDE
     Dosage: 1ST TO 4TH CHEMOTHERAPY, AIDASHENG POWDER FOR INJECTION + NS
     Route: 041

REACTIONS (2)
  - White blood cell count decreased [Recovering/Resolving]
  - Agranulocytosis [Recovering/Resolving]

NARRATIVE: CASE EVENT DATE: 20191203
